FAERS Safety Report 15084643 (Version 1)
Quarter: 2018Q2

REPORT INFORMATION
  Report Type: Spontaneous
  Country: FR (occurrence: FR)
  Receive Date: 20180628
  Receipt Date: 20180628
  Transmission Date: 20180711
  Serious: Yes (Other)
  Sender: FDA-Public Use
  Company Number: FR-TEVA-2018-FR-913080

PATIENT
  Age: 56 Year
  Sex: Male

DRUGS (4)
  1. ATORVASTATIN [Suspect]
     Active Substance: ATORVASTATIN
     Indication: ACUTE CORONARY SYNDROME
     Dosage: 80 MILLIGRAM DAILY; 80 MG LE SOIR
     Route: 048
     Dates: start: 20170407, end: 20180419
  2. BRINTELLIX [Concomitant]
     Active Substance: VORTIOXETINE HYDROBROMIDE
     Indication: DEPRESSION
     Dosage: 5 MILLIGRAM DAILY; 5 MG IN THE MORNING
     Route: 048
  3. ASPIRINE [Suspect]
     Active Substance: ASPIRIN
     Indication: ACUTE CORONARY SYNDROME
     Dosage: 1000 MILLIGRAM DAILY; 100 MG LE MATIN
     Route: 048
     Dates: start: 20170407
  4. BRILIQUE 90 MG, COMPRIM? PELLICUL? [Interacting]
     Active Substance: TICAGRELOR
     Indication: ACUTE CORONARY SYNDROME
     Dosage: 180 MILLIGRAM DAILY; 90 MG 1 LE MATIN ET 1 LE SOIR
     Route: 048
     Dates: start: 20170407

REACTIONS (3)
  - Enthesopathy [Recovering/Resolving]
  - Drug interaction [Unknown]
  - Arthralgia [Recovering/Resolving]

NARRATIVE: CASE EVENT DATE: 201705
